FAERS Safety Report 7778097-0 (Version None)
Quarter: 2011Q3

REPORT INFORMATION
  Report Type: 
  Country: None (occurrence: None)
  Receive Date: 20110926
  Receipt Date: 20110920
  Transmission Date: 20111222
  Serious: Yes (Other)
  Sender: FDA-Public Use
  Company Number: JP-BAYER-2011-086662

PATIENT
  Age: 40 Year
  Sex: Male

DRUGS (3)
  1. DICLOFENAC SODIUM [Suspect]
     Indication: HEADACHE
     Dosage: UNK
     Route: 065
  2. ASPIRIN [Suspect]
     Indication: HEADACHE
     Route: 048
  3. ANTIBIOTICS [Concomitant]
     Indication: PHARYNGITIS
     Dosage: UNK
     Route: 065

REACTIONS (1)
  - TUBULOINTERSTITIAL NEPHRITIS [None]
